FAERS Safety Report 4587803-8 (Version None)
Quarter: 2005Q1

REPORT INFORMATION
  Report Type: 
  Country: None (occurrence: None)
  Receive Date: 20050125
  Receipt Date: 20040902
  Transmission Date: 20050727
  Serious: No
  Sender: FDA-Public Use
  Company Number: USA040977231

PATIENT
  Age: 66 Year
  Sex: Female
  Weight: 50 kg

DRUGS (7)
  1. FORTEO [Suspect]
     Indication: OSTEOPOROSIS
     Dosage: 20 UG/ 1 DAY
     Dates: start: 20040827
  2. FOSAMAX [Concomitant]
  3. MIACALCIN [Concomitant]
  4. CALCIUM CARBONATE + VITAMIN D [Concomitant]
  5. VITAMINS NOS [Concomitant]
  6. ACETAMINOPHEN W/HYDROCODONE [Concomitant]
  7. XANAX (ALPRAZOLAM DUM) [Concomitant]

REACTIONS (3)
  - INFLUENZA LIKE ILLNESS [None]
  - INSOMNIA [None]
  - PAIN [None]
